FAERS Safety Report 9311088 (Version 1)
Quarter: 2013Q2

REPORT INFORMATION
  Report Type: Spontaneous
  Country: US (occurrence: US)
  Receive Date: 20130528
  Receipt Date: 20130528
  Transmission Date: 20140414
  Serious: No
  Sender: FDA-Public Use
  Company Number: US-PFIZER INC-2013160913

PATIENT
  Age: 69 Year
  Sex: Female
  Weight: 38.1 kg

DRUGS (4)
  1. XALKORI [Suspect]
     Indication: LUNG NEOPLASM MALIGNANT
     Dosage: 250 MG, 2X/DAY
     Dates: start: 20130416
  2. OXYCODONE [Concomitant]
     Dosage: 5 MG, UNK
  3. ENSURE [Concomitant]
     Indication: SUPPLEMENTATION THERAPY
     Dosage: UNK
  4. ZOFRAN [Concomitant]
     Dosage: 8 MG, UNK

REACTIONS (1)
  - Dysphagia [Unknown]
